FAERS Safety Report 18682058 (Version 1)
Quarter: 2020Q4

REPORT INFORMATION
  Report Type: Report from Study
  Country: US (occurrence: US)
  Receive Date: 20201230
  Receipt Date: 20201230
  Transmission Date: 20210114
  Serious: Yes (Death, Other)
  Sender: FDA-Public Use
  Company Number: US-ACADIA PHARMACEUTICALS INC.-ACA-2020-PIM-004118

PATIENT
  Age: 77 Year
  Sex: Female

DRUGS (5)
  1. OXYCODONE [Concomitant]
     Active Substance: OXYCODONE
  2. SINEMET [Concomitant]
     Active Substance: CARBIDOPA\LEVODOPA
  3. VITAMIN D3 [Concomitant]
     Active Substance: CHOLECALCIFEROL
  4. QUETIAPINE. [Concomitant]
     Active Substance: QUETIAPINE
  5. NUPLAZID [Suspect]
     Active Substance: PIMAVANSERIN TARTRATE
     Indication: PARKINSON^S DISEASE
     Dosage: 34 MILLIGRAM, QD
     Route: 048
     Dates: start: 20190630

REACTIONS (2)
  - Death [Fatal]
  - Circulatory collapse [Unknown]

NARRATIVE: CASE EVENT DATE: 20201212
